FAERS Safety Report 10687153 (Version 1)
Quarter: 2014Q4

REPORT INFORMATION
  Report Type: Spontaneous
  Country: US (occurrence: None)
  Receive Date: 20141229
  Receipt Date: 20141229
  Transmission Date: 20150529
  Serious: Yes (Hospitalization)
  Sender: FDA-Public Use
  Company Number: 2014EXPUS00287

PATIENT
  Sex: Female

DRUGS (3)
  1. BUPIVACAINE [Suspect]
     Active Substance: BUPIVACAINE
     Indication: PRODUCT USED FOR UNKNOWN INDICATION
     Dosage: 12 HOURS AFTER EXPAREL TAP BLOCK, EPIDURAL ?
     Route: 008
  2. ROPIVACAINE (ROPIVACAINE) [Concomitant]
  3. EXPAREL [Suspect]
     Active Substance: BUPIVACAINE
     Indication: PRODUCT USED FOR UNKNOWN INDICATION
     Dosage: TAP BLOCK
     Route: 008

REACTIONS (3)
  - Cardiac failure [None]
  - Anaesthetic complication cardiac [None]
  - Drug administration error [None]

NARRATIVE: CASE EVENT DATE: 2014
